FAERS Safety Report 23141256 (Version 3)
Quarter: 2023Q4

REPORT INFORMATION
  Report Type: Report from Study
  Country: US (occurrence: US)
  Receive Date: 20231103
  Receipt Date: 20231226
  Transmission Date: 20240109
  Serious: No
  Sender: FDA-Public Use
  Company Number: US-ALXN-A202309086

PATIENT
  Sex: Female

DRUGS (2)
  1. STRENSIQ [Suspect]
     Active Substance: ASFOTASE ALFA
     Indication: Hypophosphatasia
     Dosage: 40 MILLIGRAM
     Route: 065
  2. STRENSIQ [Suspect]
     Active Substance: ASFOTASE ALFA
     Dosage: 80 MILLIGRAM
     Route: 065

REACTIONS (14)
  - Foot fracture [Unknown]
  - COVID-19 [Recovering/Resolving]
  - Limb injury [Unknown]
  - Fatigue [Unknown]
  - Pain in extremity [Unknown]
  - Fracture [Unknown]
  - Feeling abnormal [Unknown]
  - Brain fog [Unknown]
  - Pain [Unknown]
  - Rash [Recovered/Resolved]
  - Drug ineffective [Unknown]
  - Injection site irritation [Unknown]
  - Injection site discolouration [Unknown]
  - Injection site swelling [Unknown]

NARRATIVE: CASE EVENT DATE: 20230710
